FAERS Safety Report 16837485 (Version 1)
Quarter: 2019Q3

REPORT INFORMATION
  Report Type: Spontaneous
  Country: JP (occurrence: JP)
  Receive Date: 20190923
  Receipt Date: 20190923
  Transmission Date: 20191005
  Serious: Yes (Hospitalization, Other)
  Sender: FDA-Public Use
  Company Number: JP-TEVA-2019-JP-006002J

PATIENT
  Age: 39 Year
  Sex: Male

DRUGS (1)
  1. PREDNISOLONE TABLETS 5MG. [Suspect]
     Active Substance: PREDNISOLONE
     Indication: PRODUCT USED FOR UNKNOWN INDICATION
     Dosage: DOSAGE IS UNKNOWN
     Route: 065
     Dates: start: 201312, end: 201401

REACTIONS (1)
  - Osteonecrosis [Unknown]
